FAERS Safety Report 9163274 (Version 2)
Quarter: 2013Q1

REPORT INFORMATION
  Report Type: Spontaneous
  Country: JP (occurrence: JP)
  Receive Date: 20130314
  Receipt Date: 20130325
  Transmission Date: 20140127
  Serious: Yes (Other)
  Sender: FDA-Public Use
  Company Number: JP-GLAXOSMITHKLINE-B0873460A

PATIENT
  Sex: 0

DRUGS (1)
  1. ARIXTRA [Suspect]
     Indication: THROMBOSIS PROPHYLAXIS
     Route: 042
     Dates: start: 20130302, end: 20130306

REACTIONS (2)
  - Induration [Recovered/Resolved]
  - Haemorrhage subcutaneous [Recovered/Resolved]
